FAERS Safety Report 9464096 (Version 2)
Quarter: 2013Q3

REPORT INFORMATION
  Report Type: Report from Study
  Country: US (occurrence: US)
  Receive Date: 20130819
  Receipt Date: 20130820
  Transmission Date: 20140515
  Serious: Yes (Death, Hospitalization, Other)
  Sender: FDA-Public Use
  Company Number: US-ABBOTT-13P-163-1133946-00

PATIENT
  Sex: Male

DRUGS (3)
  1. HUMIRA [Suspect]
     Indication: RHEUMATOID ARTHRITIS
     Dates: end: 201307
  2. HIGH CHOLESTEROL MEDICINES [Concomitant]
     Indication: BLOOD CHOLESTEROL INCREASED
  3. ARTHRITIS MEDICINE [Concomitant]
     Indication: ARTHRITIS

REACTIONS (14)
  - Sepsis [Fatal]
  - Candida infection [Unknown]
  - Platelet count decreased [Unknown]
  - Blood disorder [Unknown]
  - Myelodysplastic syndrome [Unknown]
  - Leukaemia [Unknown]
  - Oropharyngeal pain [Unknown]
  - Stomatitis [Unknown]
  - Mouth haemorrhage [Unknown]
  - Renal disorder [Unknown]
  - Pyrexia [Unknown]
  - Cardiac arrest [Unknown]
  - White blood cell count decreased [Unknown]
  - Feeling abnormal [Unknown]
